FAERS Safety Report 6448558-5 (Version None)
Quarter: 2009Q4

REPORT INFORMATION
  Report Type: 
  Country: None (occurrence: None)
  Receive Date: 20091120
  Receipt Date: 20091110
  Transmission Date: 20100525
  Serious: Yes (Death, Hospitalization, Other)
  Sender: FDA-Public Use
  Company Number: US-PFIZER INC-2009248865

PATIENT
  Sex: Female

DRUGS (17)
  1. SUTENT [Suspect]
     Indication: RENAL CELL CARCINOMA
     Dosage: 50 MG, 1X/DAY 3 DAYS ON, 1 DAY OFF
     Route: 048
     Dates: start: 20090625
  2. ENSURE [Suspect]
  3. ZAROXOLYN [Concomitant]
     Dosage: 2.5 MG, UNK
  4. ALDACTONE [Concomitant]
     Dosage: 25 MG, UNK
  5. ALBUTEROL [Concomitant]
     Dosage: FREQUENCY: AS NEEDED,
  6. ALBUTEROL [Concomitant]
     Dosage: 2 PUFFS, EVERY 4 HOURS
  7. NORVASC [Concomitant]
     Dosage: 10 MG, 1X/DAY
  8. TESSALON [Concomitant]
     Indication: COUGH
     Dosage: FREQUENCY: 6X/DAY AS NEEDED,
  9. ENALAPRIL MALEATE [Concomitant]
     Dosage: 10 MG, 1X/DAY
  10. FUROSEMIDE [Concomitant]
     Dosage: 40 MG, 1X/DAY
  11. LORCET-HD [Concomitant]
     Indication: PAIN
     Dosage: FREQUENCY: 6X/DAY
  12. LOPRESSOR [Concomitant]
     Dosage: FREQUENCY: 2X/DAY
  13. ZOFRAN [Concomitant]
     Indication: NAUSEA
     Dosage: FREQUENCY: 3X/DAY
  14. ZOFRAN [Concomitant]
     Indication: VOMITING
  15. OXANDROLONE [Concomitant]
     Dosage: FREQUENCY: 2X/DAY
  16. POTASSIUM [Concomitant]
     Dosage: FREQUENCY: 2X/DAY
  17. COMPAZINE [Concomitant]
     Dosage: 10 MG Q 4

REACTIONS (10)
  - DIARRHOEA [None]
  - DISEASE PROGRESSION [None]
  - GASTROINTESTINAL HAEMORRHAGE [None]
  - HAEMATURIA [None]
  - NAUSEA [None]
  - PULMONARY EMBOLISM [None]
  - RENAL CELL CARCINOMA [None]
  - THROMBOCYTOPENIA [None]
  - THROMBOSIS [None]
  - VOMITING [None]
